FAERS Safety Report 9363033 (Version 1)
Quarter: 2013Q2

REPORT INFORMATION
  Report Type: Report from Study
  Country: GB (occurrence: GB)
  Receive Date: 20130624
  Receipt Date: 20130624
  Transmission Date: 20140414
  Serious: Yes (Death, Hospitalization, Other)
  Sender: FDA-Public Use
  Company Number: GB-CELGENEUS-167-C5013-12051116

PATIENT
  Age: 82 Year
  Sex: Female
  Weight: 54.9 kg

DRUGS (9)
  1. CC-5013 [Suspect]
     Indication: CHRONIC LYMPHOCYTIC LEUKAEMIA
     Dosage: 5 MILLIGRAM
     Route: 048
     Dates: start: 20111219, end: 20111222
  2. CC-5013 [Suspect]
     Dosage: 10 MILLIGRAM
     Route: 048
     Dates: start: 20120213, end: 20120311
  3. CC-5013 [Suspect]
     Dosage: 15 MILLIGRAM
     Route: 048
     Dates: start: 20120312, end: 20120409
  4. CC-5013 [Suspect]
     Dosage: 15 MILLIGRAM
     Route: 048
     Dates: start: 20120410, end: 20120507
  5. CC-5013 [Suspect]
     Dosage: 5 MILLIGRAM
     Route: 048
     Dates: start: 20111229, end: 20120115
  6. ADCAL D3 [Concomitant]
     Indication: HYPONATRAEMIA
     Dosage: 2 TABLET
     Route: 048
  7. FILGRASTIM [Concomitant]
     Indication: NEUTROPENIA
     Dosage: 300 MICROGRAM
     Route: 058
  8. FLUCONAZOLE [Concomitant]
     Indication: ANTIFUNGAL PROPHYLAXIS
     Dosage: 400 MILLIGRAM
     Route: 048
  9. ACICLOVIR [Concomitant]
     Indication: ANTIVIRAL PROPHYLAXIS
     Dosage: 800 MILLIGRAM
     Route: 048

REACTIONS (2)
  - Malignant pleural effusion [Not Recovered/Not Resolved]
  - T-cell lymphoma [Fatal]
